FAERS Safety Report 7084951-8 (Version None)
Quarter: 2010Q4

REPORT INFORMATION
  Report Type: 
  Country: None (occurrence: None)
  Receive Date: 20101105
  Receipt Date: 20101027
  Transmission Date: 20110411
  Serious: Yes (Life-Threatening, Hospitalization)
  Sender: FDA-Public Use
  Company Number: US-BAYER-201039136NA

PATIENT
  Sex: Female

DRUGS (1)
  1. YASMIN [Suspect]
     Indication: PRODUCT USED FOR UNKNOWN INDICATION
     Route: 048

REACTIONS (6)
  - BILE DUCT OBSTRUCTION [None]
  - BILE DUCT STONE [None]
  - GALLBLADDER NON-FUNCTIONING [None]
  - GASTROINTESTINAL HAEMORRHAGE [None]
  - NEOPLASM [None]
  - ORGAN FAILURE [None]
